FAERS Safety Report 9396078 (Version 2)
Quarter: 2013Q3

REPORT INFORMATION
  Report Type: Report from Study
  Country: JP (occurrence: JP)
  Receive Date: 20130711
  Receipt Date: 20130805
  Transmission Date: 20140515
  Serious: Yes (Death, Other)
  Sender: FDA-Public Use
  Company Number: JP-JNJFOC-20130402112

PATIENT
  Age: 71 Year
  Sex: Male
  Weight: 37 kg

DRUGS (15)
  1. ONEDURO [Suspect]
     Indication: CANCER PAIN
     Route: 062
     Dates: start: 20130213
  2. FERROMIA [Concomitant]
     Indication: ANAEMIA
     Route: 048
     Dates: end: 20130219
  3. AMLODIN OD [Concomitant]
     Indication: HYPERTENSION
     Route: 048
     Dates: end: 20130219
  4. ACINON [Concomitant]
     Indication: PROPHYLAXIS
     Route: 048
     Dates: end: 20130219
  5. OXINORM [Concomitant]
     Indication: CANCER PAIN
     Route: 048
     Dates: start: 20130214, end: 20130214
  6. OXINORM [Concomitant]
     Indication: CANCER PAIN
     Route: 048
     Dates: start: 20130213, end: 20130213
  7. OXINORM [Concomitant]
     Indication: CANCER PAIN
     Route: 048
     Dates: start: 20130215, end: 20130215
  8. OXINORM [Concomitant]
     Indication: CANCER PAIN
     Route: 048
     Dates: start: 20130216, end: 20130216
  9. OXINORM [Concomitant]
     Indication: CANCER PAIN
     Route: 048
     Dates: start: 20130217, end: 20130217
  10. ROPION [Concomitant]
     Indication: CANCER PAIN
     Route: 065
     Dates: end: 20130219
  11. BEZATOL SR [Concomitant]
     Indication: DYSLIPIDAEMIA
     Route: 048
     Dates: end: 20130219
  12. ZYLORIC [Concomitant]
     Indication: HYPERURICAEMIA
     Route: 048
     Dates: end: 20130219
  13. NOVAMIN [Concomitant]
     Indication: PROPHYLAXIS
     Route: 048
     Dates: end: 20130219
  14. MAGLAX [Concomitant]
     Indication: PROPHYLAXIS
     Route: 048
     Dates: end: 20130219
  15. MEROPENEM HYDRATE [Concomitant]
     Indication: PNEUMONIA
     Route: 065
     Dates: start: 20130219, end: 20130222

REACTIONS (2)
  - Head and neck cancer [Fatal]
  - Pneumonia [Not Recovered/Not Resolved]
